FAERS Safety Report 20735008 (Version 1)
Quarter: 2022Q2

REPORT INFORMATION
  Report Type: Spontaneous
  Country: US (occurrence: US)
  Receive Date: 20220421
  Receipt Date: 20220421
  Transmission Date: 20220721
  Serious: No
  Sender: FDA-Public Use
  Company Number: US-GLENMARK PHARMACEUTICALS-2021GMK054689

PATIENT

DRUGS (1)
  1. ETHINYL ESTRADIOL\NORGESTIMATE [Suspect]
     Active Substance: ETHINYL ESTRADIOL\NORGESTIMATE
     Indication: Contraception
     Dosage: 1 DOSAGE FORM, OD
     Route: 065

REACTIONS (6)
  - Dyspareunia [Unknown]
  - Inappropriate schedule of product administration [Unknown]
  - Mood altered [Unknown]
  - Vaginal discharge [Unknown]
  - Weight fluctuation [Unknown]
  - Vaginal infection [Unknown]
